FAERS Safety Report 5255391-9 (Version None)
Quarter: 2007Q1

REPORT INFORMATION
  Report Type: 
  Country: None (occurrence: None)
  Receive Date: 20070305
  Receipt Date: 20070222
  Transmission Date: 20070707
  Serious: Yes (Hospitalization)
  Sender: FDA-Public Use
  Company Number: DK-ROCHE-474302

PATIENT
  Age: 69 Year
  Sex: Male
  Weight: 77 kg

DRUGS (9)
  1. CAPECITABINE [Suspect]
     Indication: GASTRIC CANCER
     Dosage: DRUG GIVEN ON DAYS 1-14 EVERY THREE WEEKS.
     Route: 048
     Dates: start: 20061115
  2. TRASTUZUMAB [Suspect]
     Indication: GASTRIC CANCER
     Dosage: DOSAGE FORM REPORTED AS INFUSION. LOADING DOSE GIVEN ON DAY ONE OF A 3-WEEK-CYCLE.
     Route: 042
     Dates: start: 20061115
  3. CISPLATIN [Suspect]
     Indication: GASTRIC CANCER
     Dosage: DOSAGE FORM REPORTED AS INFUSION. DRUG GIVEN ON DAY ONE EVERY THREE WEEKS.
     Route: 042
     Dates: start: 20061115
  4. METFORMIN HCL [Concomitant]
     Dosage: STARTED LONG BEFORE TRIAL MEDICATION.
  5. BENDROFLUMETHIAZID [Concomitant]
     Dosage: STARTED LONG BEFORE TRIAL MEDICATION.
  6. AMLODIPINE [Concomitant]
     Dosage: STARTED LONG BEFORE TRIAL MEDICATION.
  7. SIMVASTATIN [Concomitant]
     Dosage: STARTED LONG BEFORE TRIAL MEDICATION.
  8. ALPRAZOLAM [Concomitant]
     Dosage: STARTED LONG BEFORE TRIAL MEDICATION.
  9. INSULATARD [Concomitant]
     Dosage: STARTED LONG BEFORE TRIAL MEDICATION.

REACTIONS (3)
  - CEREBRAL ISCHAEMIA [None]
  - HEADACHE [None]
  - PERIPHERAL SENSORY NEUROPATHY [None]
